FAERS Safety Report 7769658-3 (Version None)
Quarter: 2011Q3

REPORT INFORMATION
  Report Type: 
  Country: None (occurrence: None)
  Receive Date: 20110922
  Receipt Date: 20110513
  Transmission Date: 20111222
  Serious: No
  Sender: FDA-Public Use
  Company Number: US-ASTRAZENECA-2010SE06601

PATIENT
  Age: 571 Month
  Sex: Male

DRUGS (4)
  1. SEROQUEL [Suspect]
     Route: 048
  2. BLOOD PRESSURE MEDICATION [Concomitant]
  3. BLOOD THINNERS MEDICATION [Concomitant]
  4. SEROQUEL [Suspect]
     Indication: ANXIETY
     Dosage: 1/3 A 300MG TABLET IN THE MORNING AND 2/3 TABLETS IN THE EVENING
     Route: 048
     Dates: start: 20090101

REACTIONS (4)
  - AMNESIA [None]
  - THROMBOSIS [None]
  - WRONG TECHNIQUE IN DRUG USAGE PROCESS [None]
  - HYPOAESTHESIA [None]
